FAERS Safety Report 6567033-0 (Version None)
Quarter: 2010Q1

REPORT INFORMATION
  Report Type: 
  Country: None (occurrence: None)
  Receive Date: 20100127
  Receipt Date: 20100125
  Transmission Date: 20100710
  Serious: Yes (Death)
  Sender: FDA-Public Use
  Company Number: 007844

PATIENT
  Age: 21 Month
  Sex: Female

DRUGS (8)
  1. BUSULFEX [Suspect]
     Indication: STEM CELL TRANSPLANT
     Dosage: 9 MG, QID, INTRAVENOUS
     Route: 042
     Dates: start: 20090217, end: 20090218
  2. FLUDARABINE PHOSPHATE [Concomitant]
  3. CARBENIN (BETAMIPRON, PANIPENEM) [Concomitant]
  4. CEFTAZIDIME [Concomitant]
  5. FUNGUARD JPN (MICAFUNGIN SODIUM) [Concomitant]
  6. TARGOCID [Concomitant]
  7. MEROPENEM [Concomitant]
  8. OMEGACIN JPN (BIAPENEM) [Concomitant]

REACTIONS (10)
  - BLOOD CREATININE INCREASED [None]
  - CARDIAC ARREST [None]
  - HAEMORRHAGE [None]
  - HYPOXIA [None]
  - LUNG DISORDER [None]
  - PLATELET COUNT DECREASED [None]
  - PYREXIA [None]
  - RESPIRATORY DISORDER [None]
  - THROMBOTIC MICROANGIOPATHY [None]
  - THROMBOTIC THROMBOCYTOPENIC PURPURA [None]
